FAERS Safety Report 22786112 (Version 3)
Quarter: 2023Q4

REPORT INFORMATION
  Report Type: Report from Study
  Country: US (occurrence: US)
  Receive Date: 20230804
  Receipt Date: 20231218
  Transmission Date: 20240110
  Serious: No
  Sender: FDA-Public Use
  Company Number: US-002147023-NVSC2023US168955

PATIENT
  Sex: Male

DRUGS (1)
  1. ENTRESTO [Suspect]
     Active Substance: SACUBITRIL\VALSARTAN
     Indication: Product used for unknown indication
     Dosage: 1 DOSAGE FORM, BID
     Route: 048
     Dates: start: 20230606

REACTIONS (5)
  - Oropharyngeal pain [Recovered/Resolved]
  - Throat clearing [Unknown]
  - Dyspnoea [Unknown]
  - Wheezing [Unknown]
  - Hypoaesthesia [Unknown]
